FAERS Safety Report 9994244 (Version 2)
Quarter: 2014Q1

REPORT INFORMATION
  Report Type: Spontaneous
  Country: US (occurrence: US)
  Receive Date: 20140310
  Receipt Date: 20140325
  Transmission Date: 20141002
  Serious: Yes (Other)
  Sender: FDA-Public Use
  Company Number: US-BAXTER-2014BAX011565

PATIENT
  Sex: Female

DRUGS (5)
  1. DIANEAL LOW CALCIUM [Suspect]
     Indication: PERITONEAL DIALYSIS
     Dosage: 2 BAGS
     Route: 033
     Dates: start: 201207
  2. DIANEAL LOW CALCIUM [Suspect]
     Route: 033
     Dates: start: 201207
  3. DIANEAL LOW CALCIUM [Suspect]
     Indication: PERITONEAL DIALYSIS
     Dosage: 2 BAGS
     Route: 033
     Dates: start: 201207
  4. DIANEAL LOW CALCIUM [Suspect]
     Route: 033
     Dates: start: 201207
  5. PREDNISONE [Suspect]
     Indication: EYE INFECTION
     Route: 048
     Dates: start: 201403

REACTIONS (2)
  - Weight increased [Recovering/Resolving]
  - Vertigo [Recovering/Resolving]
